FAERS Safety Report 7263123-8 (Version None)
Quarter: 2011Q1

REPORT INFORMATION
  Report Type: 
  Country: None (occurrence: None)
  Receive Date: 20110130
  Receipt Date: 20101010
  Transmission Date: 20110831
  Serious: No
  Sender: FDA-Public Use
  Company Number: US-ABBOTT-10P-163-0677661-00

PATIENT
  Age: 40 Year
  Sex: Female

DRUGS (2)
  1. CELEBREX [Concomitant]
     Indication: PRODUCT USED FOR UNKNOWN INDICATION
  2. HUMIRA [Suspect]
     Indication: ANKYLOSING SPONDYLITIS
     Dates: start: 20100501

REACTIONS (3)
  - TOOTH ABSCESS [None]
  - SINUSITIS [None]
  - TOOTHACHE [None]
